FAERS Safety Report 24995968 (Version 1)
Quarter: 2025Q1

REPORT INFORMATION
  Report Type: Spontaneous
  Country: US (occurrence: US)
  Receive Date: 20250221
  Receipt Date: 20250221
  Transmission Date: 20250409
  Serious: No
  Sender: CATALYST PHARMA
  Company Number: US-CATALYST PHARMACEUTICALS-US-CATA-24-01381

PATIENT
  Age: 6 Year
  Sex: Male
  Weight: 41.941 kg

DRUGS (5)
  1. AGAMREE [Suspect]
     Active Substance: VAMOROLONE
     Indication: Duchenne muscular dystrophy
     Dosage: 6.2 ML ONCE A DAY
     Route: 048
     Dates: start: 20241009, end: 20241015
  2. AGAMREE [Suspect]
     Active Substance: VAMOROLONE
     Dosage: 3 ML ONCE A DAY
     Route: 048
     Dates: start: 20241016
  3. CLONIDINE [Concomitant]
     Active Substance: CLONIDINE
     Indication: Affective disorder
     Route: 065
  4. FAMOTIDINE [Concomitant]
     Active Substance: FAMOTIDINE
     Indication: Gastrointestinal disorder prophylaxis
     Dosage: 10 MG ONCE A DAY
     Route: 048
  5. IMMUNE SUPPORT [Concomitant]
     Indication: Immune system disorder
     Dosage: TABLET ONCE A DAY
     Route: 048

REACTIONS (3)
  - Ear infection [Not Recovered/Not Resolved]
  - Ear infection [Not Recovered/Not Resolved]
  - Cough [Not Recovered/Not Resolved]

NARRATIVE: CASE EVENT DATE: 20241101
